FAERS Safety Report 9400230 (Version 1)
Quarter: 2013Q3

REPORT INFORMATION
  Report Type: Spontaneous
  Country: KR (occurrence: KR)
  Receive Date: 20130715
  Receipt Date: 20130715
  Transmission Date: 20140515
  Serious: Yes (Death, Other)
  Sender: FDA-Public Use
  Company Number: KR-ROXANE LABORATORIES, INC.-2013-RO-01122RO

PATIENT
  Age: 74 Year
  Sex: Male

DRUGS (5)
  1. CYCLOPHOSPHAMIDE TABLETS USP [Suspect]
     Indication: EXTRANODAL NK/T-CELL LYMPHOMA, NASAL TYPE
  2. ALEMTUZUMAB [Suspect]
     Indication: EXTRANODAL NK/T-CELL LYMPHOMA, NASAL TYPE
  3. DOXORUBICIN [Suspect]
     Indication: EXTRANODAL NK/T-CELL LYMPHOMA, NASAL TYPE
  4. VINCRISTINE [Suspect]
     Indication: EXTRANODAL NK/T-CELL LYMPHOMA, NASAL TYPE
  5. PREDNISOLONE [Suspect]
     Indication: EXTRANODAL NK/T-CELL LYMPHOMA, NASAL TYPE

REACTIONS (1)
  - Candida infection [Fatal]
